FAERS Safety Report 4883812-X (Version None)
Quarter: 2006Q1

REPORT INFORMATION
  Report Type: 
  Country: None (occurrence: None)
  Receive Date: 20060118
  Receipt Date: 20060109
  Transmission Date: 20060701
  Serious: Yes (Hospitalization)
  Sender: FDA-Public Use
  Company Number: US-BRISTOL-MYERS SQUIBB COMPANY-13241062

PATIENT
  Age: 54 Year
  Sex: Male
  Weight: 96 kg

DRUGS (6)
  1. CISPLATIN [Suspect]
     Indication: SQUAMOUS CELL CARCINOMA
     Route: 042
     Dates: start: 20020228, end: 20020228
  2. IRINOTECAN HCL [Suspect]
     Indication: SQUAMOUS CELL CARCINOMA
     Route: 042
     Dates: start: 20020228, end: 20020228
  3. ASTELIN [Concomitant]
     Route: 045
  4. TYLENOL (CAPLET) [Concomitant]
     Route: 048
  5. ZESTRIL [Concomitant]
     Route: 048
  6. NASONEX [Concomitant]
     Route: 045

REACTIONS (2)
  - HYPOTENSION [None]
  - SHOULDER PAIN [None]
